FAERS Safety Report 8107798-X (Version None)
Quarter: 2012Q1

REPORT INFORMATION
  Report Type: 
  Country: None (occurrence: None)
  Receive Date: 20120202
  Receipt Date: 20120125
  Transmission Date: 20120608
  Serious: Yes (Other)
  Sender: FDA-Public Use
  Company Number: US-VERTEX PHARMACEUTICALS INC.-AE-2012-001302

PATIENT
  Sex: Male

DRUGS (3)
  1. INCIVEK [Suspect]
     Indication: HEPATITIS C
     Route: 048
     Dates: start: 20120109
  2. PEG-INTRON [Concomitant]
     Indication: HEPATITIS C
     Dates: start: 20120109
  3. RIBAVIRIN [Concomitant]
     Indication: HEPATITIS C

REACTIONS (16)
  - DEHYDRATION [None]
  - DRY MOUTH [None]
  - BONE PAIN [None]
  - RED BLOOD CELL COUNT DECREASED [None]
  - SUICIDAL IDEATION [None]
  - INSOMNIA [None]
  - FATIGUE [None]
  - RECTAL FISSURE [None]
  - CONVULSION [None]
  - DYSPNOEA [None]
  - BLOOD POTASSIUM DECREASED [None]
  - BLOOD MAGNESIUM DECREASED [None]
  - HYPOTENSION [None]
  - NOCTURIA [None]
  - WEIGHT INCREASED [None]
  - PRURITUS [None]
